FAERS Safety Report 4350193-X (Version None)
Quarter: 2004Q2

REPORT INFORMATION
  Report Type: 
  Country: None (occurrence: None)
  Receive Date: 20040426
  Receipt Date: 20040409
  Transmission Date: 20050107
  Serious: Yes (Hospitalization)
  Sender: FDA-Public Use
  Company Number: MAG-2004-0000253

PATIENT
  Age: 76 Year
  Sex: Female

DRUGS (4)
  1. POVIDONE IODINE [Suspect]
     Indication: CATARACT OPERATION
     Dosage: OPHTHALMIC
     Route: 047
     Dates: start: 20031128, end: 20031128
  2. XYLOCAINE [Suspect]
     Indication: EYE OPERATION
     Dates: start: 20031128
  3. DUOVISC () [Suspect]
     Dates: start: 20031128
  4. BSS [Suspect]
     Dates: start: 20031128

REACTIONS (3)
  - ENDOPHTHALMITIS [None]
  - INFLAMMATION [None]
  - POST PROCEDURAL COMPLICATION [None]
